FAERS Safety Report 4525426-7 (Version None)
Quarter: 2004Q4

REPORT INFORMATION
  Report Type: 
  Country: None (occurrence: None)
  Receive Date: 20041213
  Receipt Date: 20041130
  Transmission Date: 20050328
  Serious: Yes (Hospitalization)
  Sender: FDA-Public Use
  Company Number: CH-GLAXOSMITHKLINE-B0359286A

PATIENT
  Age: 56 Year
  Sex: Female

DRUGS (20)
  1. SERETIDE DISKUS [Suspect]
     Indication: ASTHMA
     Route: 055
  2. SANDIMMUNE [Suspect]
     Indication: ASTHMA
     Dosage: 75MG TWICE PER DAY
     Route: 048
     Dates: end: 20041029
  3. TOLVON [Suspect]
     Dosage: 30MG PER DAY
     Route: 048
     Dates: start: 20041010
  4. SEROPRAM [Suspect]
     Dosage: 20MG PER DAY
     Route: 048
  5. ZESTRIL [Suspect]
     Indication: ILL-DEFINED DISORDER
     Dosage: 20MG PER DAY
     Route: 048
     Dates: end: 20041029
  6. UNIFYL [Suspect]
     Indication: ILL-DEFINED DISORDER
     Route: 048
  7. SINGULAIR [Concomitant]
     Indication: ILL-DEFINED DISORDER
     Dosage: 5MG PER DAY
     Route: 048
  8. PLAVIX [Concomitant]
     Indication: ILL-DEFINED DISORDER
     Dosage: 75MG PER DAY
     Route: 048
  9. MEVALOTIN [Concomitant]
     Indication: ILL-DEFINED DISORDER
     Dosage: 20MG PER DAY
     Route: 048
  10. PANTOZOL [Concomitant]
     Indication: ILL-DEFINED DISORDER
     Dosage: 20MG PER DAY
     Route: 048
  11. PREDNISOLONE [Concomitant]
     Indication: ASTHMA
     Dosage: 20MG PER DAY
     Route: 048
  12. FOSAMAX [Concomitant]
     Indication: ILL-DEFINED DISORDER
     Dosage: 70MG WEEKLY
     Route: 048
  13. CALCIMAGON-D3 [Concomitant]
     Indication: ILL-DEFINED DISORDER
     Route: 048
  14. SPIRIVA [Concomitant]
     Indication: ASTHMA
     Dosage: 18MCG PER DAY
     Route: 055
  15. NORVASC [Concomitant]
     Indication: ESSENTIAL HYPERTENSION
     Dosage: 5MG AS REQUIRED
     Route: 048
  16. ADALAT [Concomitant]
     Indication: ESSENTIAL HYPERTENSION
     Dosage: 30MG PER DAY
     Route: 048
     Dates: start: 20041026
  17. STILNOX [Concomitant]
     Indication: SLEEP DISORDER
  18. MIDAZOLAM HCL [Concomitant]
     Indication: SLEEP DISORDER
  19. ZYPREXA [Concomitant]
     Indication: SLEEP DISORDER
     Dosage: 2.5MG UNKNOWN
  20. TOLVON [Concomitant]
     Indication: SLEEP DISORDER

REACTIONS (15)
  - AFFECTIVE DISORDER [None]
  - CEREBROVASCULAR ACCIDENT [None]
  - DIPLOPIA [None]
  - DYSARTHRIA [None]
  - ELECTROCARDIOGRAM QT PROLONGED [None]
  - EYELID PTOSIS [None]
  - FACIAL PARESIS [None]
  - HEMIANOPIA [None]
  - HYPERCHOLESTEROLAEMIA [None]
  - HYPERHIDROSIS [None]
  - HYPERREFLEXIA [None]
  - HYPERTENSION [None]
  - HYPOAESTHESIA [None]
  - RENAL IMPAIRMENT [None]
  - SEROTONIN SYNDROME [None]
